FAERS Safety Report 15840824 (Version 2)
Quarter: 2019Q1

REPORT INFORMATION
  Report Type: Spontaneous
  Country: DE (occurrence: DE)
  Receive Date: 20190118
  Receipt Date: 20190123
  Transmission Date: 20190417
  Serious: Yes (Disabling, Other)
  Sender: FDA-Public Use
  Company Number: DE-TEVA-2019-DE-999587

PATIENT
  Age: 69 Year
  Sex: Male
  Weight: 73 kg

DRUGS (4)
  1. HYDROCORTISON [Suspect]
     Active Substance: HYDROCORTISONE
     Indication: SEASONAL ALLERGY
     Dosage: SINGLE-DOSE EFFECT OCCURS FROM A DOSE OF 10 MG HYDROCORTISONE
     Route: 048
  2. DEXAMETHASON [Suspect]
     Active Substance: DEXAMETHASONE
     Indication: SEASONAL ALLERGY
     Route: 065
  3. HYDROCORTISON [Suspect]
     Active Substance: HYDROCORTISONE
     Dosage: TWICE IN 2 YEARS OVER 3 DAYS
     Route: 065
  4. TRIAMCINOLON (TRIAMCINOLONE) [Suspect]
     Active Substance: TRIAMCINOLONE
     Indication: SEASONAL ALLERGY
     Route: 030

REACTIONS (3)
  - Retinal oedema [Recovered/Resolved with Sequelae]
  - Visual impairment [Recovered/Resolved with Sequelae]
  - Retinal scar [Recovered/Resolved with Sequelae]

NARRATIVE: CASE EVENT DATE: 1986
